FAERS Safety Report 9860560 (Version 1)
Quarter: 2014Q1

REPORT INFORMATION
  Report Type: Report from Study
  Country: PA (occurrence: PA)
  Receive Date: 20140202
  Receipt Date: 20140202
  Transmission Date: 20141002
  Serious: Yes (Other)
  Sender: FDA-Public Use
  Company Number: PA-US-EMD SERONO, INC.-7265733

PATIENT
  Age: 41 Year
  Sex: Female
  Weight: 130 kg

DRUGS (1)
  1. REBIF [Suspect]
     Indication: MULTIPLE SCLEROSIS
     Dates: start: 20131113, end: 20131115

REACTIONS (8)
  - Dengue fever [Unknown]
  - Eye pain [Unknown]
  - Pain in extremity [Unknown]
  - Sensation of heaviness [Unknown]
  - Gait disturbance [Unknown]
  - Pyrexia [Unknown]
  - Headache [Unknown]
  - Chills [Unknown]
